FAERS Safety Report 7931009-9 (Version None)
Quarter: 2011Q4

REPORT INFORMATION
  Report Type: 
  Country: None (occurrence: None)
  Receive Date: 20111121
  Receipt Date: 20111115
  Transmission Date: 20120403
  Serious: No
  Sender: FDA-Public Use
  Company Number: US-PFIZER INC-2011260549

PATIENT
  Sex: Female

DRUGS (3)
  1. CARDIZEM [Suspect]
     Indication: ABDOMINAL DISCOMFORT
     Dosage: 180 MG, 1X/DAY
     Route: 048
     Dates: start: 19970901, end: 19971201
  2. AZITHROMYCIN [Suspect]
     Indication: ABDOMINAL PAIN
     Dosage: UNK
  3. CARDIZEM [Suspect]
     Indication: DRUG INTOLERANCE

REACTIONS (3)
  - DRUG INTOLERANCE [None]
  - ABDOMINAL PAIN [None]
  - DRUG HYPERSENSITIVITY [None]
